FAERS Safety Report 9847526 (Version 3)
Quarter: 2014Q4

REPORT INFORMATION
  Report Type: Spontaneous
  Country: US (occurrence: US)
  Receive Date: 20140128
  Receipt Date: 20141002
  Transmission Date: 20150529
  Serious: No
  Sender: FDA-Public Use
  Company Number: US-009507513-1401USA011019

PATIENT
  Age: 19 Year
  Sex: Female
  Weight: 81.18 kg

DRUGS (2)
  1. NEXPLANON [Suspect]
     Active Substance: ETONOGESTREL
     Indication: CONTRACEPTION
     Dosage: ONE ROD ONCE
     Route: 059
     Dates: start: 20130909, end: 20140117
  2. NEXPLANON [Suspect]
     Active Substance: ETONOGESTREL
     Dosage: UNK

REACTIONS (8)
  - Rash [Unknown]
  - Medical device complication [Unknown]
  - Scratch [Unknown]
  - Infection [Unknown]
  - Acarodermatitis [Unknown]
  - Wound [Unknown]
  - Medication error [Unknown]
  - Unintended pregnancy [Unknown]

NARRATIVE: CASE EVENT DATE: 2013
